FAERS Safety Report 9573156 (Version 3)
Quarter: 2013Q4

REPORT INFORMATION
  Report Type: Report from Study
  Country: US (occurrence: US)
  Receive Date: 20131001
  Receipt Date: 20131028
  Transmission Date: 20140711
  Serious: Yes (Death)
  Sender: FDA-Public Use
  Company Number: US-ACTELION-A-US2013-88552

PATIENT
  Age: 78 Year
  Sex: Male

DRUGS (1)
  1. VENTAVIS [Suspect]
     Indication: PULMONARY ARTERIAL HYPERTENSION
     Dosage: 5 MCG, 6X/DAY
     Route: 055
     Dates: start: 20130815, end: 20130925

REACTIONS (4)
  - Pulmonary hypertension [Fatal]
  - Fluid retention [Unknown]
  - Blister [Unknown]
  - Urine output decreased [Unknown]
